FAERS Safety Report 7732904-6 (Version None)
Quarter: 2011Q3

REPORT INFORMATION
  Report Type: 
  Country: None (occurrence: None)
  Receive Date: 20110901
  Receipt Date: 20110823
  Transmission Date: 20111222
  Serious: Yes (Hospitalization)
  Sender: FDA-Public Use
  Company Number: CIP11002102

PATIENT
  Sex: Male

DRUGS (4)
  1. ACTONEL [Suspect]
     Indication: OSTEOPOROSIS
     Dosage: ORAL
     Route: 048
  2. ALL OTHER THERAPEUTIC PRODUCTS [Concomitant]
  3. CALCIUM CARBONATE [Concomitant]
  4. ERGOCALCIFEROL [Concomitant]

REACTIONS (6)
  - BLAST CELL COUNT INCREASED [None]
  - ACUTE MYELOID LEUKAEMIA [None]
  - WHITE BLOOD CELL COUNT DECREASED [None]
  - RED BLOOD CELL COUNT DECREASED [None]
  - BACK PAIN [None]
  - PLATELET COUNT DECREASED [None]
